FAERS Safety Report 6735327-1 (Version None)
Quarter: 2010Q2

REPORT INFORMATION
  Report Type: 
  Country: None (occurrence: None)
  Receive Date: 20100520
  Receipt Date: 20100520
  Transmission Date: 20101027
  Serious: Yes (Life-Threatening, Hospitalization)
  Sender: FDA-Public Use
  Company Number: None

PATIENT
  Sex: Female
  Weight: 90.7194 kg

DRUGS (2)
  1. SYNTHROID [Suspect]
     Indication: THYROID DISORDER
     Dosage: 100 MCG EVERY DAY; 100 MC EVERY DAY
     Dates: start: 20090526, end: 20100123
  2. SYNTHROID [Suspect]

REACTIONS (3)
  - CHOKING [None]
  - HYPERSENSITIVITY [None]
  - SWOLLEN TONGUE [None]
